FAERS Safety Report 24564348 (Version 1)
Quarter: 2024Q4

REPORT INFORMATION
  Report Type: Spontaneous
  Country: ES (occurrence: ES)
  Receive Date: 20241030
  Receipt Date: 20241030
  Transmission Date: 20250114
  Serious: Yes (Hospitalization, Other)
  Sender: AUROBINDO
  Company Number: ES-AEMPS-1478613

PATIENT
  Age: 12 Year
  Sex: Female

DRUGS (2)
  1. IBUPROFEN [Suspect]
     Active Substance: IBUPROFEN
     Indication: Product used for unknown indication
     Dosage: UNK
     Route: 065
     Dates: start: 20231210, end: 20231214
  2. Fenoximetilpenicilina [Concomitant]
     Indication: Product used for unknown indication
     Dosage: UNK
     Route: 065
     Dates: end: 20231214

REACTIONS (2)
  - Acute generalised exanthematous pustulosis [Recovered/Resolved]
  - Rash [Recovered/Resolved]

NARRATIVE: CASE EVENT DATE: 20231211
